FAERS Safety Report 8180746-2 (Version None)
Quarter: 2012Q1

REPORT INFORMATION
  Report Type: 
  Country: None (occurrence: None)
  Receive Date: 20120302
  Receipt Date: 20120222
  Transmission Date: 20120608
  Serious: Yes (Hospitalization)
  Sender: FDA-Public Use
  Company Number: DE-ROCHE-1042496

PATIENT
  Sex: Female
  Weight: 73.6 kg

DRUGS (2)
  1. MABTHERA [Suspect]
     Indication: MANTLE CELL LYMPHOMA
     Dosage: 787
     Route: 042
     Dates: start: 20111228
  2. BENDAMUSTINE [Suspect]
     Indication: MANTLE CELL LYMPHOMA
     Dosage: 189
     Route: 042
     Dates: start: 20111229

REACTIONS (5)
  - WEIGHT DECREASED [None]
  - MUCOSAL INFLAMMATION [None]
  - ORAL CANDIDIASIS [None]
  - DECREASED APPETITE [None]
  - ASTHENIA [None]
